FAERS Safety Report 23599636 (Version 1)
Quarter: 2024Q1

REPORT INFORMATION
  Report Type: Spontaneous
  Country: US (occurrence: US)
  Receive Date: 20240306
  Receipt Date: 20240306
  Transmission Date: 20240409
  Serious: Yes (Hospitalization, Other)
  Sender: FDA-Public Use
  Company Number: US-SANOFI-01947971

PATIENT
  Age: 65 Year
  Sex: Male

DRUGS (2)
  1. FABRAZYME [Suspect]
     Active Substance: AGALSIDASE BETA
     Indication: Fabry^s disease
     Dosage: 60 (UNITS NOT PROVIDED), QOW
     Route: 042
     Dates: start: 20240124, end: 20240207
  2. FABRAZYME [Suspect]
     Active Substance: AGALSIDASE BETA
     Dosage: 60 (UNITS NOT PROVIDED), QOW
     Route: 042
     Dates: start: 202402

REACTIONS (3)
  - Loss of consciousness [Unknown]
  - Hospitalisation [Recovered/Resolved]
  - Fatigue [Unknown]

NARRATIVE: CASE EVENT DATE: 20240201
